FAERS Safety Report 4480055-9 (Version None)
Quarter: 2004Q4

REPORT INFORMATION
  Report Type: 
  Country: None (occurrence: None)
  Receive Date: 20041018
  Receipt Date: 20040927
  Transmission Date: 20050328
  Serious: Yes (Hospitalization)
  Sender: FDA-Public Use
  Company Number: MEDI-0002262

PATIENT
  Age: 50 Year
  Sex: Male
  Weight: 118 kg

DRUGS (15)
  1. ETHYOL [Suspect]
     Indication: RADIOTHERAPY
     Dosage: 500 MG, SUBCUTANEOUS
     Route: 058
     Dates: start: 20040913, end: 20040923
  2. RADIATION THERAPY [Concomitant]
  3. CISPLATIN [Concomitant]
  4. ZOLPIDEM TARTRATE [Concomitant]
  5. CELEBREX [Concomitant]
  6. ALLOPURINOL [Concomitant]
  7. ALTACE [Concomitant]
  8. INDOCIN [Concomitant]
  9. MULTIVITAMINS (ASCORBIC ACID/ERGOCALCIFEROL/FOLIC ACID/NICOTINAMIDE/PA [Concomitant]
  10. ALPRAZOLAM [Concomitant]
  11. DEXAMETHASONE [Concomitant]
  12. METOCLOPRAMIDE [Concomitant]
  13. PROCHLORPERAZINE MALEATE (PROCHLORPERAZINE MALEATE) [Concomitant]
  14. SENOKOT [Concomitant]
  15. TYLENOL PM (DIPHENHYDRAMINE, PARACETAMOL) [Concomitant]

REACTIONS (8)
  - BLOOD SODIUM DECREASED [None]
  - CHILLS [None]
  - DIARRHOEA [None]
  - NAUSEA [None]
  - PLATELET COUNT DECREASED [None]
  - PYREXIA [None]
  - VOMITING [None]
  - WHITE BLOOD CELL COUNT DECREASED [None]
